FAERS Safety Report 25007778 (Version 1)
Quarter: 2025Q1

REPORT INFORMATION
  Report Type: Spontaneous
  Country: US (occurrence: US)
  Receive Date: 20250225
  Receipt Date: 20250225
  Transmission Date: 20250408
  Serious: Yes (Other)
  Sender: NOVO NORDISK
  Company Number: US-NOVOPROD-1374003

PATIENT
  Sex: Female

DRUGS (3)
  1. OZEMPIC [Suspect]
     Active Substance: SEMAGLUTIDE
     Indication: Glucose tolerance impaired
     Dosage: 1 MG (PRESCRIBED 2 MG ONCE A WEEK BUT THE PATIENT ONLY TAKES 1 MG)
     Route: 058
  2. OZEMPIC [Suspect]
     Active Substance: SEMAGLUTIDE
     Route: 058
  3. OZEMPIC [Suspect]
     Active Substance: SEMAGLUTIDE
     Indication: Insulin resistance
     Route: 058
     Dates: start: 202210

REACTIONS (8)
  - Starvation [Unknown]
  - Blood glucose decreased [Unknown]
  - Food intolerance [Unknown]
  - Decreased appetite [Unknown]
  - Vomiting [Unknown]
  - Off label use [Unknown]
  - Wrong technique in product usage process [Unknown]
  - Intentional product use issue [Unknown]
